FAERS Safety Report 16582123 (Version 1)
Quarter: 2019Q3

REPORT INFORMATION
  Report Type: Spontaneous
  Country: UA (occurrence: UA)
  Receive Date: 20190717
  Receipt Date: 20190717
  Transmission Date: 20191004
  Serious: Yes (Other)
  Sender: FDA-Public Use
  Company Number: UA-ASTRAZENECA-2019SF00225

PATIENT
  Age: 59 Year
  Sex: Female

DRUGS (4)
  1. FORXIGA [Suspect]
     Active Substance: DAPAGLIFLOZIN
     Indication: TYPE 2 DIABETES MELLITUS
     Dosage: 10.0MG UNKNOWN
     Route: 048
     Dates: start: 20190603
  2. METFORMIN [Concomitant]
     Active Substance: METFORMIN HYDROCHLORIDE
     Dosage: 2500.0MG UNKNOWN
  3. OLTAR [Concomitant]
     Dosage: 6.0MG UNKNOWN
  4. GLUTAZAN [Concomitant]
     Dosage: 15.0MG UNKNOWN

REACTIONS (1)
  - Ketonuria [Recovered/Resolved]

NARRATIVE: CASE EVENT DATE: 20190604
